FAERS Safety Report 25407679 (Version 1)
Quarter: 2025Q2

REPORT INFORMATION
  Report Type: Spontaneous
  Country: US (occurrence: None)
  Receive Date: 20250605
  Receipt Date: 20250605
  Transmission Date: 20250717
  Serious: Yes (Other)
  Sender: FDA-CTU
  Company Number: None

PATIENT
  Sex: Male

DRUGS (2)
  1. FLUOXETINE [Suspect]
     Active Substance: FLUOXETINE HYDROCHLORIDE
  2. CELEXA [Suspect]
     Active Substance: CITALOPRAM HYDROBROMIDE

REACTIONS (15)
  - Withdrawal syndrome [None]
  - Therapy change [None]
  - Electric shock sensation [None]
  - Tremor [None]
  - Akathisia [None]
  - Gastrointestinal disorder [None]
  - Hypoaesthesia [None]
  - Disturbance in attention [None]
  - Mood swings [None]
  - Suicidal ideation [None]
  - Anxiety [None]
  - Panic attack [None]
  - Agitation [None]
  - Loss of personal independence in daily activities [None]
  - Job dissatisfaction [None]

NARRATIVE: CASE EVENT DATE: 20130601
